FAERS Safety Report 6843847-4 (Version None)
Quarter: 2010Q3

REPORT INFORMATION
  Report Type: 
  Country: None (occurrence: None)
  Receive Date: 20100715
  Receipt Date: 20100702
  Transmission Date: 20110219
  Serious: Yes (Hospitalization)
  Sender: FDA-Public Use
  Company Number: PHHY2010FR43935

PATIENT
  Age: 78 Year
  Sex: Female

DRUGS (1)
  1. RASILEZ [Suspect]
     Dosage: 150 MG
     Dates: start: 20100301

REACTIONS (8)
  - DIARRHOEA [None]
  - GAIT DISTURBANCE [None]
  - GASTROENTERITIS [None]
  - HYPOKALAEMIA [None]
  - HYPONATRAEMIA [None]
  - SPEECH DISORDER [None]
  - TREMOR [None]
  - VOMITING [None]
